FAERS Safety Report 9190921 (Version 1)
Quarter: 2013Q1

REPORT INFORMATION
  Report Type: Spontaneous
  Country: ES (occurrence: ES)
  Receive Date: 20130326
  Receipt Date: 20130326
  Transmission Date: 20140127
  Serious: Yes (Other)
  Sender: FDA-Public Use
  Company Number: ES-GLAXOSMITHKLINE-B0877456A

PATIENT
  Age: 80 Year
  Sex: Male

DRUGS (11)
  1. MALARONE [Suspect]
     Indication: PROPHYLAXIS
     Route: 048
     Dates: start: 20130310, end: 20130311
  2. CARDURAN NEO [Concomitant]
     Indication: HYPERTENSION
  3. COROPRES [Concomitant]
     Indication: HYPERTENSION
  4. CARDIL [Concomitant]
  5. SEGURIL [Concomitant]
     Indication: HYPERTENSION
  6. PROSCAR [Concomitant]
     Indication: BENIGN PROSTATIC HYPERPLASIA
  7. TAMSULOSINE [Concomitant]
     Indication: BENIGN PROSTATIC HYPERPLASIA
  8. DIANBEN [Concomitant]
     Indication: DIABETES MELLITUS
  9. TRAJENTA [Concomitant]
     Indication: DIABETES MELLITUS
  10. INSULIN [Concomitant]
     Indication: DIABETES MELLITUS
  11. ZARATOR [Concomitant]

REACTIONS (3)
  - Urinary tract infection [Not Recovered/Not Resolved]
  - Chromaturia [Not Recovered/Not Resolved]
  - White blood cells urine positive [Not Recovered/Not Resolved]
